FAERS Safety Report 4385831-9 (Version None)
Quarter: 2004Q2

REPORT INFORMATION
  Report Type: 
  Country: None (occurrence: None)
  Receive Date: 20040628
  Receipt Date: 20040625
  Transmission Date: 20050107
  Serious: Yes (Death)
  Sender: FDA-Public Use
  Company Number: AU-ROCHE-371895

PATIENT
  Age: 25 Year
  Sex: Male

DRUGS (2)
  1. ROACCUTANE [Suspect]
     Indication: ACNE
     Route: 048
     Dates: start: 20040615
  2. ROACCUTANE [Suspect]
     Route: 048
     Dates: start: 20020615, end: 20020615

REACTIONS (1)
  - CONVULSION [None]
